FAERS Safety Report 18933276 (Version 2)
Quarter: 2021Q1

REPORT INFORMATION
  Report Type: Report from Study
  Country: MX (occurrence: MX)
  Receive Date: 20210224
  Receipt Date: 20210310
  Transmission Date: 20210420
  Serious: Yes (Other)
  Sender: FDA-Public Use
  Company Number: NVSC2021MX041115

PATIENT
  Sex: Female
  Weight: 60 kg

DRUGS (6)
  1. CODIOVAN [Suspect]
     Active Substance: HYDROCHLOROTHIAZIDE\VALSARTAN
     Indication: BLOOD PRESSURE ABNORMAL
     Dosage: 1 DF, BID (1 IN MORNING AND ONE AT NIGHT)
     Route: 065
  2. SPIRIVA [Concomitant]
     Active Substance: TIOTROPIUM BROMIDE MONOHYDRATE
     Indication: PULMONARY FIBROSIS
     Dosage: 1 IU, QD
     Route: 055
  3. EXFORGE HCT [Suspect]
     Active Substance: AMLODIPINE BESYLATE\HYDROCHLOROTHIAZIDE\VALSARTAN
     Indication: BLOOD PRESSURE ABNORMAL
     Dosage: 0.5 DF, QD (IN MORNING)
     Route: 048
  4. EUTIROX [Concomitant]
     Active Substance: LEVOTHYROXINE SODIUM
     Indication: HYPOTHYROIDISM
     Dosage: UNK
     Route: 065
  5. PEMIX [Concomitant]
     Indication: HIATUS HERNIA
     Dosage: 1 DF, QD (AT MID DAY)
     Route: 065
  6. ASPIRIN PROTECT [Concomitant]
     Active Substance: ASPIRIN
     Indication: BLOOD VISCOSITY ABNORMAL
     Dosage: 1 DF, QHS
     Route: 048

REACTIONS (3)
  - Off label use [Unknown]
  - Drug ineffective [Not Recovered/Not Resolved]
  - Blood pressure systolic increased [Unknown]
